FAERS Safety Report 4464926-5 (Version None)
Quarter: 2004Q4

REPORT INFORMATION
  Report Type: 
  Country: None (occurrence: None)
  Receive Date: 20041004
  Receipt Date: 20040305
  Transmission Date: 20050328
  Serious: No
  Sender: FDA-Public Use
  Company Number: 364921

PATIENT
  Sex: Male

DRUGS (3)
  1. COREG [Suspect]
     Dosage: 12.5MG TWICE PER DAY
     Route: 048
  2. ZESTRIL [Concomitant]
  3. LASIX [Concomitant]

REACTIONS (1)
  - DIZZINESS [None]
